FAERS Safety Report 14019880 (Version 3)
Quarter: 2017Q4

REPORT INFORMATION
  Report Type: Spontaneous
  Country: IN (occurrence: IN)
  Receive Date: 20170928
  Receipt Date: 20171214
  Transmission Date: 20180321
  Serious: Yes (Death, Congenital Anomaly, Other)
  Sender: FDA-Public Use
  Company Number: IN-TORRENT-00001365

PATIENT
  Sex: Female

DRUGS (2)
  1. FOLIC ACID. [Concomitant]
     Active Substance: FOLIC ACID
     Indication: PROPHYLAXIS
     Route: 064
  2. OLANZAPINE. [Suspect]
     Active Substance: OLANZAPINE
     Indication: PSYCHOTIC DISORDER
     Route: 064

REACTIONS (2)
  - Foetal exposure during pregnancy [Unknown]
  - Tracheo-oesophageal fistula [Recovered/Resolved with Sequelae]
